FAERS Safety Report 5716676-2 (Version None)
Quarter: 2008Q2

REPORT INFORMATION
  Report Type: 
  Country: None (occurrence: None)
  Receive Date: 20080424
  Receipt Date: 20070424
  Transmission Date: 20081010
  Serious: No
  Sender: FDA-Public Use
  Company Number: US-BAYER-200710243BWH

PATIENT
  Age: 65 Year
  Sex: Male
  Weight: 76 kg

DRUGS (2)
  1. LEVITRA [Suspect]
     Indication: ERECTILE DYSFUNCTION
     Dosage: TOTAL DAILY DOSE: 20 MG  UNIT DOSE: 20 MG
     Route: 048
  2. PROPECIA [Concomitant]
     Route: 048
     Dates: start: 20061227, end: 20070114

REACTIONS (7)
  - DRUG USE FOR UNKNOWN INDICATION [None]
  - ERECTILE DYSFUNCTION [None]
  - ERECTION INCREASED [None]
  - FLUSHING [None]
  - HEADACHE [None]
  - NASAL CONGESTION [None]
  - URINARY RETENTION [None]
